FAERS Safety Report 18730573 (Version 1)
Quarter: 2021Q1

REPORT INFORMATION
  Report Type: Spontaneous
  Country: AR (occurrence: AR)
  Receive Date: 20210112
  Receipt Date: 20210112
  Transmission Date: 20210419
  Serious: Yes (Hospitalization, Other)
  Sender: FDA-Public Use
  Company Number: AR-PFIZER INC-2021017294

PATIENT
  Age: 55 Year
  Sex: Male

DRUGS (1)
  1. SUTENT [Suspect]
     Active Substance: SUNITINIB MALATE
     Indication: METASTATIC RENAL CELL CARCINOMA
     Dosage: 50 MG, DAILY
     Dates: start: 20200626

REACTIONS (7)
  - Yellow skin [Unknown]
  - Swelling [Unknown]
  - Malaise [Unknown]
  - Acne [Unknown]
  - Diabetes mellitus [Unknown]
  - Macule [Recovered/Resolved]
  - Swelling face [Unknown]

NARRATIVE: CASE EVENT DATE: 202101
